FAERS Safety Report 16578046 (Version 10)
Quarter: 2020Q1

REPORT INFORMATION
  Report Type: Spontaneous
  Country: US (occurrence: US)
  Receive Date: 20190716
  Receipt Date: 20200320
  Transmission Date: 20200409
  Serious: No
  Sender: FDA-Public Use
  Company Number: US-PFIZER INC-2019302745

PATIENT
  Age: 67 Year
  Sex: Female

DRUGS (3)
  1. LYRICA [Suspect]
     Active Substance: PREGABALIN
     Indication: NEURALGIA
     Dosage: 125 MG, 3X/DAY (100 MG WITH 25 MG TO MAKE 125 MG THREE TIMES A DAY)
     Route: 048
  2. LYRICA [Suspect]
     Active Substance: PREGABALIN
     Dosage: 125 MG, 3X/DAY
  3. LYRICA [Suspect]
     Active Substance: PREGABALIN
     Indication: NEPHROPATHY
     Dosage: 125 MG, 3X/DAY (100 MG WITH 25 MG TO MAKE 125 MG THREE TIMES A DAY)
     Route: 048

REACTIONS (3)
  - Gait disturbance [Unknown]
  - Gait inability [Unknown]
  - Pain [Unknown]
